FAERS Safety Report 11792734 (Version 1)
Quarter: 2015Q4

REPORT INFORMATION
  Report Type: Spontaneous
  Country: IE (occurrence: None)
  Receive Date: 20151130
  Receipt Date: 20151130
  Transmission Date: 20160305
  Serious: No
  Sender: FDA-Public Use
  Company Number: 2015R1-106732

PATIENT
  Age: 3 Year
  Sex: Female

DRUGS (1)
  1. TESTOSTERONE (TESTOSTERONE) GEL [Suspect]
     Active Substance: TESTOSTERONE
     Indication: ANDROGEN REPLACEMENT THERAPY
     Route: 061

REACTIONS (6)
  - Virilism [None]
  - Precocious puberty [None]
  - Enlarged clitoris [None]
  - Blood testosterone increased [None]
  - Hyperandrogenism [None]
  - Accidental exposure to product by child [None]
